FAERS Safety Report 6060800-1 (Version None)
Quarter: 2009Q1

REPORT INFORMATION
  Report Type: 
  Country: None (occurrence: None)
  Receive Date: 20090202
  Receipt Date: 20090126
  Transmission Date: 20090719
  Serious: Yes (Death)
  Sender: FDA-Public Use
  Company Number: PHBS2009ES00625

PATIENT
  Age: 50 Year
  Sex: Female

DRUGS (4)
  1. IMATINIB MESYLATE [Suspect]
     Indication: PULMONARY ARTERIAL HYPERTENSION
     Dosage: 200 MG/D
  2. BOSENTAN [Concomitant]
     Dosage: 250 MG/D
  3. SILDENAFIL CITRATE [Concomitant]
     Dosage: UP TO 300 MG/D
  4. ILOPROST [Concomitant]

REACTIONS (1)
  - RIGHT VENTRICULAR FAILURE [None]
